FAERS Safety Report 19050492 (Version 1)
Quarter: 2021Q1

REPORT INFORMATION
  Report Type: Spontaneous
  Country: US (occurrence: US)
  Receive Date: 20210324
  Receipt Date: 20210324
  Transmission Date: 20210420
  Serious: Yes (Death, Other)
  Sender: FDA-Public Use
  Company Number: US-SA-2021SA099262

PATIENT
  Age: 60 Year
  Sex: Male

DRUGS (2)
  1. ZANTAC [Suspect]
     Active Substance: RANITIDINE HYDROCHLORIDE
     Indication: DYSPEPSIA
     Dosage: 150 MG, QD
     Dates: start: 200501, end: 201804
  2. ZANTAC [Suspect]
     Active Substance: RANITIDINE HYDROCHLORIDE
     Indication: HYPERCHLORHYDRIA

REACTIONS (5)
  - Colorectal cancer stage IV [Fatal]
  - Small intestine carcinoma stage IV [Fatal]
  - Hepatic cancer stage IV [Fatal]
  - Pancreatic carcinoma stage IV [Fatal]
  - Gastrointestinal carcinoma [Fatal]

NARRATIVE: CASE EVENT DATE: 20130101
